FAERS Safety Report 6533120-6 (Version None)
Quarter: 2010Q1

REPORT INFORMATION
  Report Type: 
  Country: None (occurrence: None)
  Receive Date: 20100111
  Receipt Date: 20100105
  Transmission Date: 20100710
  Serious: Yes (Death, Hospitalization)
  Sender: FDA-Public Use
  Company Number: US-ASTRAZENECA-2010SE00771

PATIENT
  Age: 31 Year
  Sex: Male

DRUGS (2)
  1. QUETIAPINE FUMARATE [Suspect]
     Route: 048
  2. TRAZODONE HCL [Suspect]
     Route: 048

REACTIONS (3)
  - CARDIAC ARREST [None]
  - DRUG TOXICITY [None]
  - RESPIRATORY ARREST [None]
